FAERS Safety Report 11789904 (Version 1)
Quarter: 2015Q4

REPORT INFORMATION
  Report Type: Report from Study
  Country: CA (occurrence: CA)
  Receive Date: 20151201
  Receipt Date: 20151201
  Transmission Date: 20160305
  Serious: Yes (Other)
  Sender: FDA-Public Use
  Company Number: CA-JNJFOC-20151126342

PATIENT
  Age: 37 Year
  Sex: Male
  Weight: 61 kg

DRUGS (1)
  1. REMICADE [Suspect]
     Active Substance: INFLIXIMAB
     Indication: COLITIS ULCERATIVE
     Route: 042
     Dates: start: 20141221

REACTIONS (3)
  - Haematoma [Recovering/Resolving]
  - Splenectomy [Unknown]
  - Venous stent insertion [Unknown]

NARRATIVE: CASE EVENT DATE: 20151124
